FAERS Safety Report 10504637 (Version 1)
Quarter: 2014Q4

REPORT INFORMATION
  Report Type: Spontaneous
  Country: FR (occurrence: FR)
  Receive Date: 20141008
  Receipt Date: 20141008
  Transmission Date: 20150528
  Serious: Yes (Death, Life-Threatening, Hospitalization, Other)
  Sender: FDA-Public Use
  Company Number: FR-PFIZER INC-2014273065

PATIENT
  Age: 83 Year
  Sex: Male

DRUGS (6)
  1. PIASCLEDINE [Concomitant]
     Active Substance: AVOCADO OIL\SOYBEAN OIL
     Dosage: 300 MG, UNK
  2. MODECATE [Concomitant]
     Active Substance: FLUPHENAZINE DECANOATE
  3. PARKINANE LP [Concomitant]
     Active Substance: TRIHEXYPHENIDYL HYDROCHLORIDE
     Dosage: 5 MG, UNK
  4. KARDEGIC [Interacting]
     Active Substance: ASPIRIN LYSINE
     Dosage: 75 MG, 1X/DAY
     Route: 048
     Dates: end: 20140608
  5. CELEBREX [Suspect]
     Active Substance: CELECOXIB
     Dosage: 200 MG, 2X/DAY
     Route: 048
     Dates: end: 20140608
  6. PARACETAMOL [Concomitant]
     Active Substance: ACETAMINOPHEN

REACTIONS (11)
  - Duodenal ulcer perforation [Unknown]
  - Drug interaction [Recovered/Resolved with Sequelae]
  - Sepsis [Fatal]
  - Colitis [Unknown]
  - Peritonitis [Unknown]
  - Necrosis [Recovered/Resolved with Sequelae]
  - Anaemia [Recovered/Resolved with Sequelae]
  - Pallor [Unknown]
  - Pneumonia [Fatal]
  - Shock haemorrhagic [Recovered/Resolved with Sequelae]
  - Hypotension [Unknown]

NARRATIVE: CASE EVENT DATE: 20140608
